FAERS Safety Report 7587639-X (Version None)
Quarter: 2011Q3

REPORT INFORMATION
  Report Type: 
  Country: None (occurrence: None)
  Receive Date: 20110704
  Receipt Date: 20110622
  Transmission Date: 20111222
  Serious: Yes (Other)
  Sender: FDA-Public Use
  Company Number: PHFR2011GB03834

PATIENT
  Sex: Male

DRUGS (2)
  1. TEGRETOL [Suspect]
     Dosage: 3 X 200 MG IN EVENING
  2. TEGRETOL [Suspect]
     Dosage: 3 X 200 MG MORNING + 3 X 200 MG EVENIN

REACTIONS (5)
  - ACCIDENTAL OVERDOSE [None]
  - FEELING ABNORMAL [None]
  - SOMNOLENCE [None]
  - MALAISE [None]
  - DIZZINESS [None]
